FAERS Safety Report 13429313 (Version 1)
Quarter: 2017Q2

REPORT INFORMATION
  Report Type: Spontaneous
  Country: US (occurrence: US)
  Receive Date: 20170411
  Receipt Date: 20170411
  Transmission Date: 20170830
  Serious: Yes (Life-Threatening, Hospitalization, Other)
  Sender: FDA-Public Use
  Company Number: US-BAUSCH-BL-2017-009133

PATIENT
  Age: 22 Year
  Sex: Female

DRUGS (6)
  1. ACETAZOLAMIDE. [Concomitant]
     Active Substance: ACETAZOLAMIDE
     Indication: PRODUCT USED FOR UNKNOWN INDICATION
  2. HYDROCORTISONE. [Suspect]
     Active Substance: HYDROCORTISONE
     Route: 048
  3. HYDROCORTISONE. [Suspect]
     Active Substance: HYDROCORTISONE
     Route: 048
  4. HYDROCORTISONE. [Suspect]
     Active Substance: HYDROCORTISONE
     Indication: PITUITARY-DEPENDENT CUSHING^S SYNDROME
     Route: 048
  5. HYDROCORTISONE. [Suspect]
     Active Substance: HYDROCORTISONE
     Dosage: 20 MG TWICE DAILY TO BE DECREASED BY 5-10 MG EVERY 2 WEEKS AS TOLERATED UP TO 20 MG ONCE DAILY
     Route: 048
  6. HYDROCORTISONE. [Suspect]
     Active Substance: HYDROCORTISONE
     Route: 048

REACTIONS (6)
  - Facial paralysis [Recovered/Resolved]
  - VIth nerve paralysis [Recovered/Resolved]
  - Intracranial pressure increased [Recovered/Resolved]
  - Disease progression [Recovered/Resolved]
  - Diplopia [Recovered/Resolved]
  - Drug ineffective [Recovered/Resolved]
